FAERS Safety Report 22063925 (Version 1)
Quarter: 2023Q1

REPORT INFORMATION
  Report Type: Report from Study
  Country: GR (occurrence: GR)
  Receive Date: 20230306
  Receipt Date: 20230306
  Transmission Date: 20230417
  Serious: Yes (Death, Hospitalization, Other)
  Sender: FDA-Public Use
  Company Number: GR-TAKEDA-2023TUS021165

PATIENT
  Age: 75 Year
  Sex: Female

DRUGS (1)
  1. HUMAN IMMUNOGLOBULIN G\HYALURONIDASE RECOMBINANT HUMAN [Suspect]
     Active Substance: HUMAN IMMUNOGLOBULIN G\HYALURONIDASE RECOMBINANT HUMAN
     Indication: Immunodeficiency common variable
     Dosage: 1 DOSAGE FORM, MONTHLY
     Route: 058
     Dates: start: 20210901

REACTIONS (3)
  - COVID-19 [Fatal]
  - Cardiac failure [Fatal]
  - Chronic leukaemia [Fatal]

NARRATIVE: CASE EVENT DATE: 20220901
